FAERS Safety Report 17229742 (Version 3)
Quarter: 2020Q1

REPORT INFORMATION
  Report Type: Spontaneous
  Country: US (occurrence: US)
  Receive Date: 20200103
  Receipt Date: 20200221
  Transmission Date: 20200409
  Serious: No
  Sender: FDA-Public Use
  Company Number: US-ASTRAZENECA-2019SF77572

PATIENT
  Sex: Female
  Weight: 49.9 kg

DRUGS (1)
  1. BEVESPI AEROSPHERE [Suspect]
     Active Substance: FORMOTEROL FUMARATE\GLYCOPYRROLATE
     Indication: EMPHYSEMA
     Dosage: 9MCG/4.8MCG, 2 PUFFS TWICE A DAY
     Route: 055
     Dates: start: 2018

REACTIONS (2)
  - Device issue [Unknown]
  - Oxygen saturation decreased [Unknown]
